FAERS Safety Report 6372877-4 (Version None)
Quarter: 2009Q3

REPORT INFORMATION
  Report Type: 
  Country: None (occurrence: None)
  Receive Date: 20090924
  Receipt Date: 20090105
  Transmission Date: 20100115
  Serious: Yes (Other)
  Sender: FDA-Public Use
  Company Number: US-ASTRAZENECA-2008UW26940

PATIENT
  Age: 18417 Day
  Sex: Male

DRUGS (3)
  1. SEROQUEL [Suspect]
     Indication: BIPOLAR DISORDER
     Route: 048
     Dates: end: 20081201
  2. SEROQUEL [Suspect]
     Route: 048
     Dates: start: 20081202
  3. VALIUM [Concomitant]

REACTIONS (3)
  - DYSPHAGIA [None]
  - DYSPNOEA [None]
  - RASH [None]
